FAERS Safety Report 12882715 (Version 1)
Quarter: 2016Q4

REPORT INFORMATION
  Report Type: Spontaneous
  Country: MT (occurrence: MT)
  Receive Date: 20161025
  Receipt Date: 20161025
  Transmission Date: 20170207
  Serious: Yes (Other)
  Sender: FDA-Public Use
  Company Number: MT-IPCA LABORATORIES LIMITED-IPC201610-000894

PATIENT
  Age: 79 Year
  Sex: Male

DRUGS (7)
  1. CARVEDILOL. [Concomitant]
     Active Substance: CARVEDILOL
     Indication: ATRIAL FIBRILLATION
  2. WARFARIN [Concomitant]
     Active Substance: WARFARIN
     Indication: ATRIAL FIBRILLATION
  3. PERINDOPRIL [Concomitant]
     Active Substance: PERINDOPRIL
     Indication: ATRIAL FIBRILLATION
  4. DIGOXIN. [Concomitant]
     Active Substance: DIGOXIN
     Indication: ATRIAL FIBRILLATION
  5. ASPIRIN. [Concomitant]
     Active Substance: ASPIRIN
     Indication: ATRIAL FIBRILLATION
  6. FUROSEMIDE. [Suspect]
     Active Substance: FUROSEMIDE
     Indication: OEDEMA PERIPHERAL
  7. SIMVASTATIN. [Concomitant]
     Active Substance: SIMVASTATIN
     Indication: ATRIAL FIBRILLATION

REACTIONS (1)
  - Dermatitis bullous [Recovered/Resolved]
